FAERS Safety Report 9511117 (Version 1)
Quarter: 2013Q3

REPORT INFORMATION
  Report Type: Spontaneous
  Country: US (occurrence: None)
  Receive Date: 20130905
  Receipt Date: 20130905
  Transmission Date: 20140515
  Serious: Yes (Hospitalization)
  Sender: FDA-Public Use
  Company Number: 2013P1019024

PATIENT
  Age: 16 Year
  Sex: Female

DRUGS (1)
  1. RISPERIDONE [Suspect]
     Dosage: 37.5 MG; Q2W; IM
     Dates: start: 2011

REACTIONS (4)
  - Breast enlargement [None]
  - Hirsutism [None]
  - Galactorrhoea [None]
  - Blood prolactin increased [None]
